FAERS Safety Report 8496457 (Version 2)
Quarter: 2012Q4

REPORT INFORMATION
  Report Type: 
  Country: AU (occurrence: AU)
  Receive Date: 20120405
  Receipt Date: 20120920
  Transmission Date: 20130627
  Serious: Yes (Disabling)
  Sender: FDA-Public Use
  Company Number: AU-SANOFI-AVENTIS-2012SA021165

PATIENT
  Age: 50 Year
  Sex: Male

DRUGS (8)
  1. OXALIPLATIN [Suspect]
     Indication: METASTATIC COLON CANCER
     Route: 042
  2. OXALIPLATIN [Suspect]
     Indication: METASTATIC COLON CANCER
     Route: 042
  3. CAPECITABINE [Suspect]
     Indication: METASTATIC COLON CANCER
     Dosage: Received for 14 days, given every 3 weeks
     Route: 048
  4. CAPECITABINE [Suspect]
     Indication: METASTATIC COLON CANCER
     Route: 048
  5. BEVACIZUMAB [Suspect]
     Indication: METASTATIC COLON CANCER
     Route: 042
  6. BEVACIZUMAB [Suspect]
     Indication: METASTATIC COLON CANCER
     Route: 042
  7. ONDANSETRON [Concomitant]
     Indication: CHEMOTHERAPY ANTIEMETIC PROPHYLAXIS
  8. DEXAMETHASONE [Concomitant]
     Indication: CHEMOTHERAPY ANTIEMETIC PROPHYLAXIS

REACTIONS (8)
  - Retinal vein thrombosis [Not Recovered/Not Resolved]
  - Pupillary reflex impaired [Not Recovered/Not Resolved]
  - Papilloedema [Not Recovered/Not Resolved]
  - Retinal haemorrhage [Not Recovered/Not Resolved]
  - Macular oedema [Not Recovered/Not Resolved]
  - Vision blurred [Not Recovered/Not Resolved]
  - Retinal vascular disorder [Not Recovered/Not Resolved]
  - Blindness [Not Recovered/Not Resolved]
